FAERS Safety Report 21842328 (Version 1)
Quarter: 2023Q1

REPORT INFORMATION
  Report Type: Spontaneous
  Country: US (occurrence: None)
  Receive Date: 20230109
  Receipt Date: 20230109
  Transmission Date: 20230418
  Serious: Yes (Hospitalization)
  Sender: FDA-Public Use
  Company Number: None

PATIENT
  Age: 89 Year
  Sex: Male
  Weight: 83.42 kg

DRUGS (7)
  1. CAPECITABINE [Suspect]
     Active Substance: CAPECITABINE
     Indication: Rectal cancer
     Dosage: FREQUENCY : TWICE A DAY;?
     Route: 048
  2. IRON [Concomitant]
     Active Substance: IRON
  3. METOPROLOL [Concomitant]
     Active Substance: METOPROLOL
  4. VITAMINS [Concomitant]
     Active Substance: VITAMINS
  5. PROTONIX [Concomitant]
     Active Substance: PANTOPRAZOLE SODIUM
  6. TORSEMIDE [Concomitant]
     Active Substance: TORSEMIDE
  7. WARFARIN [Concomitant]
     Active Substance: WARFARIN

REACTIONS (2)
  - Sepsis [None]
  - Therapy interrupted [None]
